FAERS Safety Report 6547426-8 (Version None)
Quarter: 2010Q1

REPORT INFORMATION
  Report Type: 
  Country: None (occurrence: None)
  Receive Date: 20100122
  Receipt Date: 20100119
  Transmission Date: 20100710
  Serious: Yes (Death, Other)
  Sender: FDA-Public Use
  Company Number: PHEH2009US18513

PATIENT
  Sex: Female

DRUGS (4)
  1. EXJADE [Suspect]
     Indication: IRON OVERLOAD
     Dosage: 1000 MG, DAILY
     Route: 048
     Dates: start: 20091103, end: 20091202
  2. EXJADE [Suspect]
     Indication: MYELODYSPLASTIC SYNDROME
  3. STEROIDS NOS [Concomitant]
  4. PROTON PUMP INHIBITORS [Concomitant]

REACTIONS (9)
  - ABDOMINAL PAIN [None]
  - ABDOMINAL PAIN UPPER [None]
  - DYSPEPSIA [None]
  - GASTRIC ULCER PERFORATION [None]
  - HAEMORRHAGE [None]
  - LAPAROTOMY [None]
  - NAUSEA [None]
  - POST PROCEDURAL COMPLICATION [None]
  - THROMBOCYTOPENIA [None]
